FAERS Safety Report 18334199 (Version 2)
Quarter: 2021Q2

REPORT INFORMATION
  Report Type: Report from Study
  Country: DE (occurrence: DE)
  Receive Date: 20201001
  Receipt Date: 20210628
  Transmission Date: 20210717
  Serious: Yes (Other)
  Sender: FDA-Public Use
  Company Number: DE-ACCORD-162076

PATIENT
  Age: 49 Year
  Sex: Female
  Weight: 70.9 kg

DRUGS (11)
  1. ZOMETA [Suspect]
     Active Substance: ZOLEDRONIC ACID
     Indication: METASTASES TO BONE
     Dosage: 4 MG
     Route: 065
     Dates: start: 20191227
  2. RIBOCICLIB. [Suspect]
     Active Substance: RIBOCICLIB
     Indication: BREAST CANCER
     Dosage: 400 MG, QD FOR 21 DAYS INTAKE AND 7 DAYS PAUSE
     Route: 048
     Dates: start: 20191004, end: 20191031
  3. CALCIMAGON D3 [Concomitant]
     Active Substance: CALCIUM\CHOLECALCIFEROL
     Indication: PRODUCT USED FOR UNKNOWN INDICATION
     Dosage: UNK, QD (ONCE IN THE MORNING PER DAY)
     Dates: start: 20191010
  4. ZOLADEX [Concomitant]
     Active Substance: GOSERELIN ACETATE
     Indication: PRODUCT USED FOR UNKNOWN INDICATION
     Dates: start: 20190828
  5. GONADORELIN [Suspect]
     Active Substance: GONADORELIN
     Indication: BREAST CANCER
     Dosage: 3.6 MG, QMO
     Route: 058
     Dates: start: 20190828
  6. GOSERELIN/GOSERELIN ACETATE [Suspect]
     Active Substance: GOSERELIN
     Indication: BREAST CANCER METASTATIC
     Dosage: 3.6 MG, UNK
     Route: 058
     Dates: start: 20190828, end: 20190828
  7. RIBOCICLIB. [Suspect]
     Active Substance: RIBOCICLIB
     Indication: BREAST CANCER
     Dosage: 600 MG, QD
     Route: 048
     Dates: start: 20190829, end: 20190918
  8. ZOMETA [Suspect]
     Active Substance: ZOLEDRONIC ACID
     Indication: METASTASES TO BONE
     Dosage: 4 MG
     Route: 042
     Dates: start: 20191004
  9. LETROZOLE. [Suspect]
     Active Substance: LETROZOLE
     Indication: BREAST CANCER
     Dosage: 2.5 MG, QD
     Route: 048
     Dates: start: 20190829, end: 20200119
  10. ABEMACICLIB [Concomitant]
     Active Substance: ABEMACICLIB
     Indication: PRODUCT USED FOR UNKNOWN INDICATION
     Route: 065
     Dates: start: 20200127
  11. PARACETAMOL [Concomitant]
     Active Substance: ACETAMINOPHEN
     Indication: MYALGIA
     Dosage: 500 MG, OT
     Route: 065
     Dates: start: 20191101, end: 20191101

REACTIONS (17)
  - Nausea [Unknown]
  - Musculoskeletal stiffness [Not Recovered/Not Resolved]
  - Dysuria [Recovered/Resolved]
  - Disturbance in attention [Not Recovered/Not Resolved]
  - Fatigue [Recovered/Resolved]
  - Libido decreased [Not Recovered/Not Resolved]
  - Rash [Recovered/Resolved]
  - Influenza like illness [Recovered/Resolved]
  - Myalgia [Recovered/Resolved]
  - Dry skin [Recovered/Resolved]
  - Back pain [Not Recovered/Not Resolved]
  - Amenorrhoea [Not Recovered/Not Resolved]
  - Alanine aminotransferase increased [Recovered/Resolved]
  - Headache [Recovered/Resolved]
  - Stomatitis [Not Recovered/Not Resolved]
  - Constipation [Recovered/Resolved]
  - Aspartate aminotransferase increased [Recovering/Resolving]

NARRATIVE: CASE EVENT DATE: 20190830
